FAERS Safety Report 9599327 (Version 1)
Quarter: 2013Q4

REPORT INFORMATION
  Report Type: Spontaneous
  Country: US (occurrence: US)
  Receive Date: 20131004
  Receipt Date: 20131004
  Transmission Date: 20140711
  Serious: No
  Sender: FDA-Public Use
  Company Number: US-AMGEN-USASP2013029054

PATIENT
  Age: 57 Year
  Sex: Male
  Weight: 72.56 kg

DRUGS (3)
  1. ENBREL [Suspect]
     Indication: PSORIASIS
     Dosage: 50 MG, QWK
     Route: 058
  2. LIPITOR [Concomitant]
     Dosage: UNK
  3. ADVIL                              /00044201/ [Concomitant]
     Dosage: UNK

REACTIONS (2)
  - Oedema peripheral [Unknown]
  - Injection site reaction [Unknown]
